FAERS Safety Report 11452245 (Version 1)
Quarter: 2015Q3

REPORT INFORMATION
  Report Type: Spontaneous
  Country: US (occurrence: None)
  Receive Date: 20150902
  Receipt Date: 20150902
  Transmission Date: 20151125
  Serious: No
  Sender: FDA-Public Use
  Company Number: None

PATIENT

DRUGS (1)
  1. AVYCAZ [Suspect]
     Active Substance: AVIBACTAM SODIUM\CEFTAZIDIME
     Dosage: STRENGTH: 2G/0.5G PER VIAL  SINGLE USE VIAL  ROUTE: INTRAVENOUS INFUSION?DOSAGE FORM: INJECTABLE
     Route: 042

REACTIONS (3)
  - Product name confusion [None]
  - Product label issue [None]
  - Circumstance or information capable of leading to medication error [None]
